FAERS Safety Report 10142995 (Version 1)
Quarter: 2014Q2

REPORT INFORMATION
  Report Type: Other
  Country: GB (occurrence: GB)
  Receive Date: 20140430
  Receipt Date: 20140430
  Transmission Date: 20141212
  Serious: Yes (Hospitalization)
  Sender: FDA-Public Use
  Company Number: GB-SUN PHARMACEUTICAL INDUSTRIES LTD-2014SUN00935

PATIENT
  Sex: 0

DRUGS (11)
  1. WARFARIN [Suspect]
     Indication: ATRIAL FIBRILLATION
     Dosage: AS PER INR
     Route: 048
  2. BUMETANIDE [Suspect]
     Indication: PRODUCT USED FOR UNKNOWN INDICATION
     Route: 048
  3. LIRAGLUTIDE [Suspect]
     Indication: TYPE 2 DIABETES MELLITUS
     Dosage: AS DIRECTED
     Route: 048
  4. LISINOPRIL [Suspect]
     Indication: HYPERTENSION
     Route: 048
  5. SPIRONOLACTONE [Suspect]
     Indication: PRODUCT USED FOR UNKNOWN INDICATION
     Route: 048
  6. TOLBUTAMIDE [Suspect]
     Indication: TYPE 2 DIABETES MELLITUS
     Dosage: 1 G, BID
     Route: 048
  7. ACARBOSE [Concomitant]
  8. ATORVASTATIN [Concomitant]
  9. BISOPROLOL [Concomitant]
  10. OMEPRAZOLE [Concomitant]
  11. PARACETAMOL [Concomitant]

REACTIONS (4)
  - Renal failure acute [Unknown]
  - Hypoglycaemia [Unknown]
  - Epistaxis [Unknown]
  - International normalised ratio increased [Unknown]
